FAERS Safety Report 15018447 (Version 1)
Quarter: 2018Q2

REPORT INFORMATION
  Report Type: Spontaneous
  Country: US (occurrence: US)
  Receive Date: 20180615
  Receipt Date: 20180615
  Transmission Date: 20180711
  Serious: Yes (Death)
  Sender: FDA-Public Use
  Company Number: US-HAEMONETICS CORP-2049510

PATIENT
  Age: 47 Year
  Sex: Male
  Weight: 106.36 kg

DRUGS (1)
  1. HAEMONETICS ANTICOAGULANT SODIUM CITRATE [Suspect]
     Active Substance: TRISODIUM CITRATE DIHYDRATE
     Route: 042
     Dates: start: 20180522, end: 20180522

REACTIONS (1)
  - Death [Fatal]

NARRATIVE: CASE EVENT DATE: 20180523
